FAERS Safety Report 6181342-9 (Version None)
Quarter: 2009Q2

REPORT INFORMATION
  Report Type: 
  Country: None (occurrence: None)
  Receive Date: 20090506
  Receipt Date: 20090430
  Transmission Date: 20091009
  Serious: Yes (Life-Threatening, Hospitalization)
  Sender: FDA-Public Use
  Company Number: JP-MERCK-0810USA04459

PATIENT
  Age: 76 Year
  Sex: Male
  Weight: 59 kg

DRUGS (9)
  1. COZAAR [Suspect]
     Indication: HYPERTENSION
     Route: 048
     Dates: start: 20080923, end: 20080926
  2. COZAAR [Suspect]
     Route: 048
     Dates: start: 20080918, end: 20080922
  3. LASIX [Suspect]
     Indication: POLYURIA
     Route: 048
     Dates: start: 20080923, end: 20080929
  4. LIPITOR [Concomitant]
     Indication: HYPERLIPIDAEMIA
     Route: 048
     Dates: start: 20080918, end: 20080926
  5. ZYLORIC [Concomitant]
     Indication: HYPERURICAEMIA
     Route: 048
     Dates: end: 20080922
  6. ZYLORIC [Concomitant]
     Route: 048
     Dates: start: 20080923, end: 20081005
  7. NORVASC [Concomitant]
     Indication: HYPERTENSION
     Route: 048
     Dates: end: 20081005
  8. KREMEZIN [Concomitant]
     Indication: AZOTAEMIA
     Route: 048
     Dates: start: 20080918, end: 20081002
  9. FLUITRAN [Concomitant]
     Indication: POLYURIA
     Route: 048
     Dates: end: 20080922

REACTIONS (2)
  - RASH [None]
  - STEVENS-JOHNSON SYNDROME [None]
